FAERS Safety Report 8364697-6 (Version None)
Quarter: 2012Q2

REPORT INFORMATION
  Report Type: 
  Country: None (occurrence: None)
  Receive Date: 20120514
  Receipt Date: 20120502
  Transmission Date: 20120825
  Serious: Yes (Other)
  Sender: FDA-Public Use
  Company Number: AUR-APL-2012-02172

PATIENT
  Age: 70 Year
  Sex: Male
  Weight: 87 kg

DRUGS (4)
  1. CLARITHROMYCIN [Suspect]
     Indication: HELICOBACTER INFECTION
     Dosage: 6 DOSAGE FORMS (3 DOSAGE FORMS, 2 IN 1 D), ORAL
     Route: 048
     Dates: start: 20120405, end: 20120413
  2. AMOXICILLIN [Suspect]
     Indication: HELICOBACTER INFECTION
     Dosage: 6 DOSAGE FORMS (3 DOSAGE FORMS, 2 IN 1 D) ORAL
     Route: 048
     Dates: start: 20120405, end: 20120413
  3. SOTALOL HCL [Concomitant]
  4. PANTOPRAZOLE [Suspect]
     Indication: HELICOBACTER INFECTION
     Dosage: 6 DOSAGE FORMS (3 DOSAGE FORMS, 2 IN 1 D), ORAL
     Route: 048
     Dates: start: 20120405, end: 20120413

REACTIONS (4)
  - DIARRHOEA [None]
  - OEDEMA PERIPHERAL [None]
  - LOCALISED OEDEMA [None]
  - NAUSEA [None]
